FAERS Safety Report 6428049-8 (Version None)
Quarter: 2009Q4

REPORT INFORMATION
  Report Type: 
  Country: None (occurrence: None)
  Receive Date: 20091105
  Receipt Date: 20091027
  Transmission Date: 20100525
  Serious: Yes (Hospitalization)
  Sender: FDA-Public Use
  Company Number: CH-ASTRAZENECA-2009SE23782

PATIENT
  Age: 42 Year
  Sex: Male
  Weight: 76 kg

DRUGS (6)
  1. NEXIUM [Suspect]
     Route: 048
  2. DAFALGAN [Suspect]
     Indication: RENAL COLIC
     Route: 048
     Dates: start: 20080928, end: 20081001
  3. ROCOPHIN [Suspect]
     Indication: CALCULUS URINARY
     Route: 041
     Dates: start: 20090715
  4. VOLTAREN [Suspect]
     Indication: RENAL COLIC
     Dosage: AS NECESSARY
     Route: 065
  5. MINALGIN [Concomitant]
     Indication: RENAL COLIC
     Dates: start: 20090714
  6. PETHIDIN HCL [Concomitant]
     Dosage: 50 MG 1 TOTAL
     Route: 051

REACTIONS (4)
  - ASCITES [None]
  - HEPATITIS TOXIC [None]
  - HEPATOCELLULAR INJURY [None]
  - PORTAL HYPERTENSION [None]
